FAERS Safety Report 18236847 (Version 1)
Quarter: 2020Q3

REPORT INFORMATION
  Report Type: Spontaneous
  Country: CA (occurrence: CA)
  Receive Date: 20200907
  Receipt Date: 20200907
  Transmission Date: 20201103
  Serious: Yes (Life-Threatening, Hospitalization)
  Sender: FDA-Public Use
  Company Number: CA-ACCORD-199489

PATIENT
  Age: 6 Year
  Sex: Female
  Weight: 28 kg

DRUGS (6)
  1. METHOTREXATE. [Suspect]
     Active Substance: METHOTREXATE
     Indication: T-CELL TYPE ACUTE LEUKAEMIA
     Dosage: 1 EVERY 1 WEEKS
     Route: 048
  2. METHOTREXATE. [Concomitant]
     Active Substance: METHOTREXATE
     Dosage: NOT SPECIFIED
  3. SEPTRA [Concomitant]
     Active Substance: SULFAMETHOXAZOLE\TRIMETHOPRIM
  4. PURINETHOL [Suspect]
     Active Substance: MERCAPTOPURINE
     Indication: T-CELL TYPE ACUTE LEUKAEMIA
     Dosage: STRENGTH 50MG, 1 EVERY 1 DAYS
     Route: 048
  5. DEXAMETHASONE. [Concomitant]
     Active Substance: DEXAMETHASONE
     Dosage: NOT SPECIFIED
  6. FLOVENT [Concomitant]
     Active Substance: FLUTICASONE PROPIONATE
     Dosage: NOT SPECIFIED

REACTIONS (5)
  - Neutropenia [Unknown]
  - Influenza [Unknown]
  - Off label use [Unknown]
  - Upper respiratory tract infection [Unknown]
  - Pyrexia [Unknown]
